FAERS Safety Report 14441273 (Version 1)
Quarter: 2018Q1

REPORT INFORMATION
  Report Type: Report from Study
  Country: US (occurrence: US)
  Receive Date: 20180125
  Receipt Date: 20180125
  Transmission Date: 20180509
  Serious: Yes (Hospitalization, Other)
  Sender: FDA-Public Use
  Company Number: US-REGENERON PHARMACEUTICALS, INC.-2018-11462

PATIENT

DRUGS (3)
  1. DONEPEZIL HCL [Concomitant]
     Active Substance: DONEPEZIL HYDROCHLORIDE
     Indication: PRODUCT USED FOR UNKNOWN INDICATION
     Dosage: 10 MG, UNK
  2. EYLEA [Suspect]
     Active Substance: AFLIBERCEPT
     Indication: ARTHRALGIA
     Dosage: 2 MG, EVERY 4 WEEKS INTO THE RIGHT EYE
     Route: 031
  3. LOVASTATIN. [Concomitant]
     Active Substance: LOVASTATIN
     Indication: PRODUCT USED FOR UNKNOWN INDICATION
     Dosage: 40 MG, UNK

REACTIONS (3)
  - Hospitalisation [Unknown]
  - Drug dose omission [Unknown]
  - Off label use [Unknown]
